FAERS Safety Report 7384611-X (Version None)
Quarter: 2011Q1

REPORT INFORMATION
  Report Type: 
  Country: None (occurrence: None)
  Receive Date: 20110330
  Receipt Date: 20110324
  Transmission Date: 20110831
  Serious: Yes (Hospitalization, Other)
  Sender: FDA-Public Use
  Company Number: CHPA2011US04409

PATIENT
  Age: 56 Year
  Sex: Female
  Weight: 77.098 kg

DRUGS (4)
  1. CONTROL PLP [Suspect]
     Indication: SMOKING CESSATION THERAPY
     Dosage: 21 MG, QD
     Route: 062
     Dates: start: 20100101, end: 20100101
  2. ANTIHYPERTENSIVES [Concomitant]
     Indication: HYPERTENSION
  3. OTHER ANTI-ASTHMATICS, INHALANTS [Concomitant]
     Indication: ASTHMA
     Dosage: UNK , UNK
     Dates: start: 20100624
  4. CONTROL PLP [Suspect]
     Dosage: 21 MG, QD
     Route: 062
     Dates: start: 20090101, end: 20090101

REACTIONS (3)
  - PNEUMONIA [None]
  - CHRONIC OBSTRUCTIVE PULMONARY DISEASE [None]
  - NICOTINE DEPENDENCE [None]
